FAERS Safety Report 5594144-9 (Version None)
Quarter: 2008Q1

REPORT INFORMATION
  Report Type: 
  Country: None (occurrence: None)
  Receive Date: 20080115
  Receipt Date: 20080108
  Transmission Date: 20080703
  Serious: Yes (Life-Threatening, Hospitalization, Other)
  Sender: FDA-Public Use
  Company Number: CLOF-10734

PATIENT
  Age: 41 Year
  Sex: Female

DRUGS (27)
  1. CLOFARABINE (CLOFARABINE) SOLUTION FOR INFUSION [Suspect]
     Indication: ACUTE MYELOID LEUKAEMIA
     Dosage: 22.5 MG/M2, QDX5, INTRAVENOUS
     Route: 042
     Dates: start: 20071006, end: 20071010
  2. IDARUBICIN HCL [Suspect]
     Indication: ACUTE MYELOID LEUKAEMIA
     Dosage: 10 MG/M2, QDX3, INTRAVENOUS
     Route: 042
     Dates: start: 20071006, end: 20071008
  3. ACETAMINOPHEN [Concomitant]
  4. ALNAGEL (ALUMIIUM HYDROXIDE, ALUMINIUM PHOSPHATE, MAGNESIUM HYDROXIDE) [Concomitant]
  5. CASPOFUNGIN ACETATE (CASPOFUNGIN ACETATE) [Concomitant]
  6. DAPTOMYCIN (DAPTOMYCIN) [Concomitant]
  7. ANTUSSIN (DEXTROMETHORPHAN HYDROBROMIDE) [Concomitant]
  8. DIPHENHYDRAMINE HCL [Concomitant]
  9. DIPHENOXYLATE (DIPHENOXYLATE) [Concomitant]
  10. LORAZEPAM [Concomitant]
  11. MAGNESIUM OXIDE (MAGNESIUM OXIDE) [Concomitant]
  12. MEROPENEM (MEROPENEM) [Concomitant]
  13. NYSTATIN [Concomitant]
  14. ONDANSETRON HCL [Concomitant]
  15. PANTOPRAZOLE SODIUM [Concomitant]
  16. POSACONAZOLE [Concomitant]
  17. POTASSIUM CHLORIDE [Concomitant]
  18. PROMETHAZINE [Concomitant]
  19. PROPOXYPHENE (DEXTROPROPOXYPHENE) [Concomitant]
  20. SENOKOT (SENNA ALEXANDRINA) [Concomitant]
  21. SODIUM CHLORIDE 0.9% [Concomitant]
  22. TEMAZEPAM [Concomitant]
  23. VALTREX [Concomitant]
  24. NOXAFIL [Concomitant]
  25. LEVAQUIN [Concomitant]
  26. COMPAZINE (PROCHLORPERAZINE EDISYLATE) [Concomitant]
  27. CYTARABINE [Suspect]
     Indication: ACUTE MYELOID LEUKAEMIA
     Dosage: 100MG/M2, QDX5
     Dates: start: 20071210, end: 20071214

REACTIONS (9)
  - BONE MARROW FAILURE [None]
  - EYE PAIN [None]
  - FEBRILE NEUTROPENIA [None]
  - HEADACHE [None]
  - MENINGEAL DISORDER [None]
  - PAIN [None]
  - SUBCUTANEOUS ABSCESS [None]
  - VISUAL ACUITY REDUCED [None]
  - VISUAL DISTURBANCE [None]
